FAERS Safety Report 4649709-5 (Version None)
Quarter: 2005Q2

REPORT INFORMATION
  Report Type: 
  Country: None (occurrence: None)
  Receive Date: 20050502
  Receipt Date: 20050422
  Transmission Date: 20051028
  Serious: Yes (Hospitalization)
  Sender: FDA-Public Use
  Company Number: PHRM2005FR01366

PATIENT
  Age: 67 Year
  Sex: Female
  Weight: 67 kg

DRUGS (4)
  1. FEMARA [Suspect]
     Indication: BREAST CANCER
  2. FARMORUBICINE [Suspect]
     Indication: BREAST CANCER
     Route: 042
  3. TAXOTERE [Suspect]
     Indication: BREAST CANCER
     Route: 042
  4. LYTOS [Suspect]
     Indication: BREAST CANCER
     Route: 042

REACTIONS (7)
  - BLOOD PRESSURE DECREASED [None]
  - FLUSHING [None]
  - HYPERHIDROSIS [None]
  - NAUSEA [None]
  - PALPITATIONS [None]
  - SENSE OF OPPRESSION [None]
  - VENTRICULAR TACHYCARDIA [None]
